FAERS Safety Report 7082022-8 (Version None)
Quarter: 2010Q4

REPORT INFORMATION
  Report Type: 
  Country: None (occurrence: None)
  Receive Date: 20101103
  Receipt Date: 20101029
  Transmission Date: 20110411
  Serious: Yes (Other)
  Sender: FDA-Public Use
  Company Number: JP-PFIZER INC-2010137404

PATIENT
  Age: 61 Year
  Sex: Female

DRUGS (8)
  1. LIPITOR [Suspect]
     Indication: HYPERLIPIDAEMIA
     Dosage: 10 MG, UNKNOWN/D
     Route: 048
     Dates: start: 20090710, end: 20100924
  2. CYANOCOBALAMIN [Concomitant]
     Dosage: UNK
     Route: 048
  3. CAPTOPRIL [Concomitant]
     Dosage: UNK
     Route: 048
  4. METFORMIN HCL [Concomitant]
     Dosage: UNK
     Route: 048
  5. ADALAT [Concomitant]
     Dosage: UNK
  6. ALENDRONATE SODIUM [Concomitant]
     Dosage: UNK
     Route: 048
  7. AMARYL [Concomitant]
     Dosage: UNK
     Route: 048
  8. SENNARIDE [Concomitant]
     Dosage: UNK
     Route: 048

REACTIONS (1)
  - GAMMA-GLUTAMYLTRANSFERASE INCREASED [None]
